FAERS Safety Report 12856279 (Version 1)
Quarter: 2016Q4

REPORT INFORMATION
  Report Type: Spontaneous
  Country: GB (occurrence: GB)
  Receive Date: 20161018
  Receipt Date: 20161018
  Transmission Date: 20170207
  Serious: Yes (Other)
  Sender: FDA-Public Use
  Company Number: GB-CIPLA LTD.-2016GB19349

PATIENT

DRUGS (5)
  1. LANTUS [Concomitant]
     Active Substance: INSULIN GLARGINE
     Indication: TYPE 2 DIABETES MELLITUS
     Dosage: UNK
     Route: 065
  2. BUPIVACAINE. [Suspect]
     Active Substance: BUPIVACAINE
     Indication: BURSA INJURY
     Dosage: 4 ML OF 0.25 % BUPIVACAINE
     Route: 008
  3. LIDOCAINE. [Suspect]
     Active Substance: LIDOCAINE
     Indication: BURSA INJURY
     Dosage: 4 ML OF 1 % LIDOCAINE
     Route: 008
  4. LOPINAVIR/RITONAVIR [Suspect]
     Active Substance: LOPINAVIR\RITONAVIR
     Indication: HIV INFECTION
     Dosage: 400/100 MG, BID
     Route: 065
  5. TRIAMCINOLONE [Interacting]
     Active Substance: TRIAMCINOLONE
     Indication: BURSA INJURY
     Dosage: 80 MG, UNK
     Route: 008

REACTIONS (4)
  - Cushing^s syndrome [Recovered/Resolved]
  - Adrenal suppression [Recovered/Resolved]
  - Bursa injury [Unknown]
  - Drug interaction [Unknown]
